FAERS Safety Report 4360463-7 (Version None)
Quarter: 2004Q2

REPORT INFORMATION
  Report Type: 
  Country: None (occurrence: None)
  Receive Date: 20040514
  Receipt Date: 20040505
  Transmission Date: 20050107
  Serious: Yes (Hospitalization)
  Sender: FDA-Public Use
  Company Number: US-SHR-04-021822

PATIENT
  Age: 61 Year
  Sex: Male
  Weight: 78 kg

DRUGS (5)
  1. BETASERON (INTERFERON BETA-1B)INJECTION, 250 UG [Suspect]
     Indication: MULTIPLE SCLEROSIS
     Dosage: 8 MIU, EVERY 2D, SUBCUTANEOUS
     Route: 058
     Dates: start: 20030701
  2. GLUCOPHAGE ^UNS' (METFORMIN HYDROCHLORIDE) [Concomitant]
  3. DETROL [Concomitant]
  4. PRAVACHOL [Concomitant]
  5. ACETYLSALICYLIC ACID SRT [Concomitant]

REACTIONS (4)
  - CELLULITIS [None]
  - INFECTIVE TENOSYNOVITIS [None]
  - LIMB INJURY [None]
  - WOUND DRAINAGE [None]
